FAERS Safety Report 8525254-1 (Version None)
Quarter: 2012Q3

REPORT INFORMATION
  Report Type: 
  Country: None (occurrence: None)
  Receive Date: 20120720
  Receipt Date: 20120717
  Transmission Date: 20120928
  Serious: Yes (Other)
  Sender: FDA-Public Use
  Company Number: PHHY2011CA92370

PATIENT
  Sex: Male

DRUGS (1)
  1. SANDOSTATIN LAR [Suspect]
     Indication: ACROMEGALY
     Dosage: 30 MG, QMO
     Route: 030
     Dates: start: 20070124

REACTIONS (4)
  - BODY TEMPERATURE DECREASED [None]
  - GOUT [None]
  - ARTHRITIS [None]
  - BLOOD PRESSURE SYSTOLIC INCREASED [None]
